FAERS Safety Report 8801075 (Version 1)
Quarter: 2012Q4

REPORT INFORMATION
  Report Type: 
  Country: US (occurrence: US)
  Receive Date: 20120921
  Receipt Date: 20120921
  Transmission Date: 20130627
  Serious: Yes (Hospitalization)
  Sender: FDA-Public Use
  Company Number: US-JNJFOC-20120907371

PATIENT
  Age: 52 Year
  Sex: Male
  Weight: 77.11 kg

DRUGS (4)
  1. ROGAINE FOR MEN EXTRA STRENGTH [Suspect]
     Route: 061
  2. ROGAINE FOR MEN EXTRA STRENGTH [Suspect]
     Indication: ALOPECIA
     Dosage: recommended dose
     Route: 061
  3. AN UNKNOWN MEDICATION [Suspect]
     Indication: PRODUCT USED FOR UNKNOWN INDICATION
     Route: 065
  4. UNKNOWN MEDICATION [Concomitant]
     Indication: PRODUCT USED FOR UNKNOWN INDICATION
     Route: 065

REACTIONS (4)
  - Vertigo [Not Recovered/Not Resolved]
  - Hyperhidrosis [Recovered/Resolved]
  - Underdose [Not Recovered/Not Resolved]
  - Wrong technique in drug usage process [Not Recovered/Not Resolved]
